FAERS Safety Report 7787103-9 (Version None)
Quarter: 2011Q3

REPORT INFORMATION
  Report Type: 
  Country: None (occurrence: None)
  Receive Date: 20110929
  Receipt Date: 20110922
  Transmission Date: 20111222
  Serious: Yes (Death, Hospitalization, Other)
  Sender: FDA-Public Use
  Company Number: US-BAXTER-2011BH029777

PATIENT
  Age: 92 Year
  Sex: Male

DRUGS (3)
  1. KLONOPIN [Concomitant]
     Route: 065
     Dates: start: 20091001, end: 20091201
  2. KLONOPIN [Suspect]
     Indication: PRODUCT USED FOR UNKNOWN INDICATION
     Route: 065
     Dates: start: 20091001, end: 20091201
  3. GAMMAGARD LIQUID [Suspect]
     Indication: LEUKAEMIA
     Route: 065
     Dates: start: 20070101, end: 20091201

REACTIONS (7)
  - PNEUMONIA [None]
  - CHRONIC OBSTRUCTIVE PULMONARY DISEASE [None]
  - THROMBOSIS [None]
  - ABASIA [None]
  - HOSPITALISATION [None]
  - DEATH [None]
  - ALTERED STATE OF CONSCIOUSNESS [None]
